FAERS Safety Report 8983237 (Version 2)
Quarter: 2013Q3

REPORT INFORMATION
  Report Type: Report from Study
  Country: MX (occurrence: MX)
  Receive Date: 20121224
  Receipt Date: 20130802
  Transmission Date: 20140515
  Serious: Yes (Other)
  Sender: FDA-Public Use
  Company Number: PHHY2012MX119200

PATIENT
  Age: 81 Year
  Sex: Female

DRUGS (6)
  1. ACLASTA [Suspect]
     Indication: OSTEOPOROSIS
     Dosage: 5MG/100 ML ANNUAL
     Route: 042
     Dates: start: 201004
  2. PREXIGE [Concomitant]
  3. FLOTAC                                  /CHL/ [Concomitant]
  4. MICCIL [Concomitant]
  5. PARACETAMOL [Concomitant]
  6. CELESTONE                               /NET/ [Concomitant]

REACTIONS (3)
  - Fibula fracture [Not Recovered/Not Resolved]
  - Tibia fracture [Not Recovered/Not Resolved]
  - Impaired healing [Unknown]
